FAERS Safety Report 20579480 (Version 1)
Quarter: 2022Q1

REPORT INFORMATION
  Report Type: Spontaneous
  Country: CN (occurrence: CN)
  Receive Date: 20220310
  Receipt Date: 20220310
  Transmission Date: 20220423
  Serious: Yes (Hospitalization)
  Sender: FDA-Public Use
  Company Number: CN-PFIZER INC-202200354611

PATIENT
  Age: 22 Year
  Sex: Female
  Weight: 112 kg

DRUGS (1)
  1. METHOTREXATE [Suspect]
     Active Substance: METHOTREXATE
     Indication: Abortion of ectopic pregnancy
     Dosage: 100 MG, ALTERNATE DAY, A TOTAL OF 4 DOSES
     Route: 030
     Dates: start: 20220218, end: 20220224

REACTIONS (4)
  - Product use in unapproved indication [Unknown]
  - Mouth ulceration [Not Recovered/Not Resolved]
  - Eating disorder [Not Recovered/Not Resolved]
  - Oral pain [Not Recovered/Not Resolved]

NARRATIVE: CASE EVENT DATE: 20220218
